FAERS Safety Report 8995447 (Version 1)
Quarter: 2013Q1

REPORT INFORMATION
  Report Type: Spontaneous
  Country: US (occurrence: US)
  Receive Date: 20130103
  Receipt Date: 20130103
  Transmission Date: 20140127
  Serious: No
  Sender: FDA-Public Use
  Company Number: US-ABBOTT-12P-163-0912796-00

PATIENT
  Sex: Female
  Weight: 50.85 kg

DRUGS (2)
  1. SYNTHROID [Suspect]
     Indication: PRODUCT USED FOR UNKNOWN INDICATION
  2. SYNTHROID [Suspect]

REACTIONS (6)
  - Product formulation issue [Unknown]
  - Product quality issue [Unknown]
  - Tablet physical issue [Unknown]
  - Fatigue [Unknown]
  - Fatigue [Unknown]
  - Dry skin [Unknown]
